FAERS Safety Report 4376755-1 (Version None)
Quarter: 2004Q2

REPORT INFORMATION
  Report Type: 
  Country: None (occurrence: None)
  Receive Date: 20040609
  Receipt Date: 20040318
  Transmission Date: 20050107
  Serious: Yes (Other)
  Sender: FDA-Public Use
  Company Number: 2004204446US

PATIENT
  Sex: Female

DRUGS (2)
  1. BEXTRA [Suspect]
     Dosage: 20 MG
  2. DILANTIN [Concomitant]

REACTIONS (1)
  - CONVULSION [None]
